FAERS Safety Report 5288956-9 (Version None)
Quarter: 2007Q2

REPORT INFORMATION
  Report Type: 
  Country: None (occurrence: None)
  Receive Date: 20070405
  Receipt Date: 20070327
  Transmission Date: 20071010
  Serious: Yes (Hospitalization, Other)
  Sender: FDA-Public Use
  Company Number: DE-PFIZER INC-2007013711

PATIENT
  Sex: Male
  Weight: 75 kg

DRUGS (11)
  1. INSPRA [Suspect]
     Indication: CARDIAC FAILURE
     Dosage: DAILY DOSE:50MG-FREQ:DAILY
     Route: 048
     Dates: start: 20060101, end: 20070101
  2. COVERSUM [Concomitant]
     Route: 048
  3. ASPIRIN [Concomitant]
     Route: 048
  4. VERAPAMIL [Concomitant]
     Route: 048
  5. SIMVASTATIN [Concomitant]
     Route: 048
  6. CYNT [Concomitant]
     Route: 048
  7. DOXAZOSIN MESYLATE [Concomitant]
     Route: 048
  8. SPIRONOLACTONE [Concomitant]
  9. ENAHEXAL [Concomitant]
     Route: 048
  10. ESIDRIX [Concomitant]
     Route: 048
  11. NORVASC [Concomitant]
     Route: 048

REACTIONS (3)
  - ACUTE CORONARY SYNDROME [None]
  - PRIAPISM [None]
  - URETHRAL HAEMORRHAGE [None]
